FAERS Safety Report 6907288-3 (Version None)
Quarter: 2010Q3

REPORT INFORMATION
  Report Type: 
  Country: None (occurrence: None)
  Receive Date: 20100730
  Receipt Date: 20100722
  Transmission Date: 20110219
  Serious: Yes (Hospitalization, Other)
  Sender: FDA-Public Use
  Company Number: 8052073

PATIENT
  Sex: Female

DRUGS (10)
  1. LEVETIRACETAM [Suspect]
     Indication: CONVULSION
     Dosage: SEE IMAGE
     Route: 048
     Dates: start: 20090101, end: 20090801
  2. LEVETIRACETAM [Suspect]
     Indication: CONVULSION
     Dosage: SEE IMAGE
     Route: 048
     Dates: start: 20090801, end: 20090901
  3. LEVETIRACETAM [Suspect]
     Indication: CONVULSION
     Dosage: SEE IMAGE
     Route: 048
     Dates: start: 20090901
  4. LEVETIRACETAM [Suspect]
     Indication: CONVULSION
     Dosage: SEE IMAGE
     Route: 048
     Dates: start: 20090901
  5. KEPPRA [Suspect]
     Dosage: (250 MG BID)
  6. BENAZEPRIL [Concomitant]
  7. ZOLOFT [Concomitant]
  8. ZOCOR [Concomitant]
  9. TOPAMAX [Concomitant]
  10. TRICOR [Concomitant]

REACTIONS (7)
  - COMA [None]
  - CONFUSIONAL STATE [None]
  - CONVULSION [None]
  - FALL [None]
  - STARING [None]
  - TRAUMATIC BRAIN INJURY [None]
  - WRIST FRACTURE [None]
